FAERS Safety Report 8359474-6 (Version None)
Quarter: 2012Q2

REPORT INFORMATION
  Report Type: 
  Country: None (occurrence: None)
  Receive Date: 20120515
  Receipt Date: 20120507
  Transmission Date: 20120825
  Serious: Yes (Hospitalization)
  Sender: FDA-Public Use
  Company Number: US-BAYER-2011-049591

PATIENT
  Age: 34 Year
  Sex: Female
  Weight: 77 kg

DRUGS (6)
  1. DARVOCET [Concomitant]
  2. YASMIN [Suspect]
     Indication: PREMENSTRUAL SYNDROME
     Dosage: UNK
     Dates: start: 20060922, end: 20081016
  3. YAZ [Suspect]
     Indication: PREMENSTRUAL SYNDROME
     Dosage: UNK
     Dates: start: 20060922, end: 20081016
  4. PHENTERMINE [Concomitant]
     Indication: WEIGHT DECREASED
     Dosage: 37.5 MG, UNK
     Route: 048
     Dates: start: 20080211, end: 20090701
  5. IBUPROFEN [Concomitant]
     Indication: HEADACHE
  6. YEAST [Concomitant]

REACTIONS (13)
  - VENA CAVA THROMBOSIS [None]
  - CHEST PAIN [None]
  - PULMONARY EMBOLISM [None]
  - INJURY [None]
  - EMOTIONAL DISTRESS [None]
  - PLEURITIC PAIN [None]
  - DEEP VEIN THROMBOSIS [None]
  - ANXIETY [None]
  - PAIN [None]
  - PULMONARY INFARCTION [None]
  - TRAUMATIC LUNG INJURY [None]
  - FATIGUE [None]
  - VASODILATATION [None]
